FAERS Safety Report 4510341-5 (Version None)
Quarter: 2004Q4

REPORT INFORMATION
  Report Type: 
  Country: None (occurrence: None)
  Receive Date: 20041112
  Receipt Date: 20041108
  Transmission Date: 20050328
  Serious: Yes (Hospitalization)
  Sender: FDA-Public Use
  Company Number: HQWYE325409NOV04

PATIENT
  Age: 63 Year
  Sex: Female
  Weight: 77.18 kg

DRUGS (2)
  1. PREMARIN [Suspect]
     Indication: HOT FLUSH
     Dosage: TOOK ^EVERY STRENGTH^, ORAL
     Route: 048
     Dates: start: 19870101, end: 19990401
  2. PROVERA [Concomitant]

REACTIONS (3)
  - BREAST CANCER [None]
  - HEPATIC NEOPLASM [None]
  - OESTROGEN RECEPTOR ASSAY POSITIVE [None]
